FAERS Safety Report 18987425 (Version 1)
Quarter: 2021Q1

REPORT INFORMATION
  Report Type: Report from Study
  Country: US (occurrence: US)
  Receive Date: 20210309
  Receipt Date: 20210309
  Transmission Date: 20210420
  Serious: Yes (Hospitalization)
  Sender: FDA-Public Use
  Company Number: US-JNJFOC-20210313248

PATIENT
  Age: 49 Year
  Sex: Female

DRUGS (2)
  1. SPRAVATO [Suspect]
     Active Substance: ESKETAMINE
     Dosage: DOSE: 84 MG; TOTAL DOSES: 35
     Dates: start: 20191122, end: 20201030
  2. SPRAVATO [Suspect]
     Active Substance: ESKETAMINE
     Indication: DEPRESSION
     Dosage: DOSE: 56 MG; TOTAL 2 DOSES;
     Dates: start: 20191115, end: 20191119

REACTIONS (2)
  - Product dose omission issue [Unknown]
  - COVID-19 [Recovering/Resolving]

NARRATIVE: CASE EVENT DATE: 20210119
